FAERS Safety Report 8538238-4 (Version None)
Quarter: 2012Q3

REPORT INFORMATION
  Report Type: 
  Country: None (occurrence: None)
  Receive Date: 20120726
  Receipt Date: 20120718
  Transmission Date: 20120928
  Serious: Yes (Hospitalization)
  Sender: FDA-Public Use
  Company Number: US-BIOGENIDEC-2012BI026216

PATIENT
  Age: 69 Year
  Sex: Female

DRUGS (2)
  1. AVONEX [Suspect]
     Indication: MULTIPLE SCLEROSIS
     Route: 030
     Dates: end: 20110802
  2. AVONEX [Suspect]
     Route: 030
     Dates: start: 20120311

REACTIONS (4)
  - INJECTION SITE DISCOLOURATION [None]
  - THROMBOSIS [None]
  - INJECTION SITE ERYTHEMA [None]
  - ANKLE FRACTURE [None]
